FAERS Safety Report 21727699 (Version 1)
Quarter: 2022Q4

REPORT INFORMATION
  Report Type: Spontaneous
  Country: US (occurrence: None)
  Receive Date: 20221213
  Receipt Date: 20221213
  Transmission Date: 20230113
  Serious: No
  Sender: FDA-Public Use
  Company Number: None

PATIENT
  Age: 67 Year
  Sex: Male

DRUGS (1)
  1. AZITHROMYCIN [Suspect]
     Active Substance: AZITHROMYCIN
     Dosage: FREQUENCY : DAILY;?
     Route: 048
     Dates: start: 20221208, end: 20221212

REACTIONS (4)
  - Chills [None]
  - Pain [None]
  - Nausea [None]
  - Depression [None]

NARRATIVE: CASE EVENT DATE: 20221208
